FAERS Safety Report 8066765-5 (Version None)
Quarter: 2012Q1

REPORT INFORMATION
  Report Type: 
  Country: None (occurrence: None)
  Receive Date: 20120124
  Receipt Date: 20120118
  Transmission Date: 20120608
  Serious: Yes (Other)
  Sender: FDA-Public Use
  Company Number: US-BAYER-2012-006527

PATIENT
  Age: 44 Year
  Sex: Female

DRUGS (2)
  1. YAZ [Suspect]
     Dosage: UNK
     Dates: start: 20060101, end: 20100401
  2. YASMIN [Suspect]
     Dosage: UNK
     Dates: start: 20060101, end: 20100401

REACTIONS (2)
  - CHOLECYSTECTOMY [None]
  - INJURY [None]
